FAERS Safety Report 4346233-4 (Version None)
Quarter: 2004Q2

REPORT INFORMATION
  Report Type: 
  Country: None (occurrence: None)
  Receive Date: 20040426
  Receipt Date: 20040416
  Transmission Date: 20050107
  Serious: Yes (Other)
  Sender: FDA-Public Use
  Company Number: 200414229GDDC

PATIENT
  Age: 22 Year
  Sex: Male

DRUGS (3)
  1. RIFAMPICIN [Suspect]
     Indication: LYMPHADENITIS
     Dosage: DOSE: UNK
  2. ISONIAZID [Suspect]
     Indication: LYMPHADENITIS
     Dosage: DOSE: UNK
  3. PYRAZINAMIDE [Suspect]
     Indication: LYMPHADENITIS
     Dosage: DOSE: UNK

REACTIONS (13)
  - ERYTHROPOIESIS ABNORMAL [None]
  - HEPATOMEGALY [None]
  - HEPATOTOXICITY [None]
  - HISTIOCYTOSIS HAEMATOPHAGIC [None]
  - JAUNDICE [None]
  - LYMPHADENOPATHY [None]
  - MEGALOBLASTS INCREASED [None]
  - PANCYTOPENIA [None]
  - PROTHROMBIN TIME PROLONGED [None]
  - PURPURA [None]
  - PYREXIA [None]
  - RASH [None]
  - RED BLOOD CELL SEDIMENTATION RATE INCREASED [None]
